FAERS Safety Report 15678734 (Version 1)
Quarter: 2018Q4

REPORT INFORMATION
  Report Type: Spontaneous
  Country: US (occurrence: US)
  Receive Date: 20181201
  Receipt Date: 20181201
  Transmission Date: 20190205
  Serious: Yes (Hospitalization)
  Sender: FDA-Public Use
  Company Number: None

PATIENT
  Age: 56 Year
  Sex: Female
  Weight: 85.5 kg

DRUGS (35)
  1. VENLAFAXINE [Concomitant]
     Active Substance: VENLAFAXINE HYDROCHLORIDE
  2. PROMETHAZINE [Concomitant]
     Active Substance: PROMETHAZINE\PROMETHAZINE HYDROCHLORIDE
  3. SELENIUM [Concomitant]
     Active Substance: SELENIUM
  4. TURMERIC [Concomitant]
     Active Substance: HERBALS\TURMERIC
  5. TIZANIDINE. [Concomitant]
     Active Substance: TIZANIDINE
  6. VITAMIN K [Concomitant]
     Active Substance: PHYTONADIONE
  7. ZINC+COPPER [Concomitant]
  8. POTASSIUM [Concomitant]
     Active Substance: POTASSIUM
  9. AIMOVIG [Suspect]
     Active Substance: ERENUMAB-AOOE
     Indication: MIGRAINE PROPHYLAXIS
     Dosage: ?          QUANTITY:2 INJECTION(S);OTHER FREQUENCY:EVERY 30 DAYS;?
     Route: 058
     Dates: start: 20180715
  10. TOPIRAMATE. [Suspect]
     Active Substance: TOPIRAMATE
     Indication: MIGRAINE PROPHYLAXIS
     Dosage: ?          QUANTITY:1 TABLET(S);?
     Route: 048
     Dates: start: 20100515, end: 20181115
  11. PREDNISOLONE. [Concomitant]
     Active Substance: PREDNISOLONE
  12. FLUTICASONE. [Concomitant]
     Active Substance: FLUTICASONE
  13. LEVOTHYROXIN [Concomitant]
     Active Substance: LEVOTHYROXINE
  14. VITAMIN B100 [Concomitant]
  15. DOCUSATE SODIUM. [Concomitant]
     Active Substance: DOCUSATE SODIUM
  16. BABY ASPIRIN [Concomitant]
     Active Substance: ASPIRIN
  17. VITAMIN E [Concomitant]
     Active Substance: .ALPHA.-TOCOPHEROL
  18. L-LYSINE [Concomitant]
     Active Substance: LYSINE
  19. VITAMIN A [Concomitant]
     Active Substance: VITAMIN A
  20. MAGNESIUM GLUCINATE [Concomitant]
  21. LECITHIN [Concomitant]
     Active Substance: LECITHIN
  22. SUDOGEST [Concomitant]
     Active Substance: PSEUDOEPHEDRINE HYDROCHLORIDE
  23. DIHYDRO-ERGOTAMINE [Concomitant]
  24. VITAMIN D [Concomitant]
     Active Substance: CHOLECALCIFEROL
  25. CALCIUM [Concomitant]
     Active Substance: CALCIUM
  26. NAPROXEN. [Concomitant]
     Active Substance: NAPROXEN
  27. VERAPAMIL [Concomitant]
     Active Substance: VERAPAMIL HYDROCHLORIDE
  28. AFRIN [Concomitant]
     Active Substance: OXYMETAZOLINE
  29. KETOROLAC [Concomitant]
     Active Substance: KETOROLAC\KETOROLAC TROMETHAMINE
  30. FLEXERIL [Concomitant]
     Active Substance: CYCLOBENZAPRINE HYDROCHLORIDE
  31. VITAMIN B2 [Concomitant]
     Active Substance: RIBOFLAVIN
  32. MELATONIN [Concomitant]
     Active Substance: MELATONIN
  33. COENZYME Q10 [Concomitant]
     Active Substance: UBIDECARENONE
  34. SENNA [Concomitant]
     Active Substance: SENNA LEAF\SENNOSIDES\SENNOSIDES A AND B
  35. ALPHA LIPOIC ACID [Concomitant]
     Active Substance: .ALPHA.-LIPOIC ACID

REACTIONS (2)
  - Depression [None]
  - Suicidal ideation [None]

NARRATIVE: CASE EVENT DATE: 20181105
